FAERS Safety Report 5341056-1 (Version None)
Quarter: 2007Q2

REPORT INFORMATION
  Report Type: 
  Country: None (occurrence: None)
  Receive Date: 20070405
  Receipt Date: 20070123
  Transmission Date: 20071010
  Serious: No
  Sender: FDA-Public Use
  Company Number: US200701005441

PATIENT
  Sex: Female

DRUGS (2)
  1. CYMBALTA [Suspect]
     Indication: DEPRESSION
     Dosage: 40MG, ORAL
     Route: 048
     Dates: start: 20060616, end: 20060712
  2. PROZAC [Concomitant]

REACTIONS (1)
  - AMNESIA [None]
